FAERS Safety Report 6695465-9 (Version None)
Quarter: 2010Q2

REPORT INFORMATION
  Report Type: 
  Country: None (occurrence: None)
  Receive Date: 20100422
  Receipt Date: 20100422
  Transmission Date: 20101027
  Serious: Yes (Hospitalization)
  Sender: FDA-Public Use
  Company Number: None

PATIENT
  Age: 53 Year
  Sex: Male

DRUGS (2)
  1. SIMVASTATIN [Suspect]
     Indication: HYPERLIPIDAEMIA
     Dates: start: 20091026, end: 20100402
  2. GEMFIBROZIL [Suspect]
     Indication: HYPERLIPIDAEMIA
     Dates: start: 20091026, end: 20100402

REACTIONS (6)
  - FLUID INTAKE REDUCED [None]
  - HYPOPHAGIA [None]
  - OVERDOSE [None]
  - PNEUMONIA [None]
  - RHABDOMYOLYSIS [None]
  - UNRESPONSIVE TO STIMULI [None]
